FAERS Safety Report 11242240 (Version 3)
Quarter: 2015Q3

REPORT INFORMATION
  Report Type: Report from Study
  Country: BR (occurrence: BR)
  Receive Date: 20150707
  Receipt Date: 20150925
  Transmission Date: 20151125
  Serious: Yes (Other)
  Sender: FDA-Public Use
  Company Number: BR-ROCHE-1602138

PATIENT
  Sex: Male

DRUGS (1)
  1. MABTHERA [Suspect]
     Active Substance: RITUXIMAB
     Indication: LYMPHOCYTIC LEUKAEMIA
     Route: 065

REACTIONS (5)
  - Infection [Unknown]
  - Prolymphocytic leukaemia [Unknown]
  - Hypersensitivity [Unknown]
  - Lung infection [Unknown]
  - Lung disorder [Unknown]
